FAERS Safety Report 5797761-6 (Version None)
Quarter: 2008Q3

REPORT INFORMATION
  Report Type: 
  Country: None (occurrence: None)
  Receive Date: 20080702
  Receipt Date: 20080617
  Transmission Date: 20090109
  Serious: No
  Sender: FDA-Public Use
  Company Number: US-BAYER-200210758BWH

PATIENT
  Age: 65 Year
  Sex: Female
  Weight: 59 kg

DRUGS (5)
  1. ADALAT CC [Suspect]
     Indication: HYPERTENSION
     Dosage: TOTAL DAILY DOSE: 30 MG
     Route: 048
     Dates: start: 20020101, end: 20020101
  2. DIOVAN [Concomitant]
     Dosage: TOTAL DAILY DOSE: 160 MG
     Route: 048
  3. LASIX [Concomitant]
     Dosage: TOTAL DAILY DOSE: 20 MG
     Route: 048
  4. CORGARD [Concomitant]
     Dates: end: 20020122
  5. ASPIRIN [Concomitant]
     Dosage: TOTAL DAILY DOSE: 81 MG  UNIT DOSE: 81 MG
     Route: 048

REACTIONS (6)
  - CHEST PAIN [None]
  - FEELING HOT [None]
  - FLUSHING [None]
  - HEADACHE [None]
  - HEART RATE INCREASED [None]
  - PALPITATIONS [None]
